FAERS Safety Report 5988406-0 (Version None)
Quarter: 2008Q4

REPORT INFORMATION
  Report Type: 
  Country: None (occurrence: None)
  Receive Date: 20081210
  Receipt Date: 20081202
  Transmission Date: 20090506
  Serious: Yes (Other)
  Sender: FDA-Public Use
  Company Number: JP-ABBOTT-08P-087-0488034-00

PATIENT
  Age: 57 Year
  Sex: Female
  Weight: 65 kg

DRUGS (6)
  1. REMIFENTANIL [Suspect]
     Indication: GENERAL ANAESTHESIA
     Route: 065
  2. PROPOFOL [Concomitant]
     Indication: GENERAL ANAESTHESIA
     Dosage: NOT REPORTED
     Route: 042
  3. SEVOFLURANE [Concomitant]
     Indication: GENERAL ANAESTHESIA
     Dosage: 1-1.5%
  4. AIR [Concomitant]
     Indication: ANAESTHESIA
  5. OXYGEN [Concomitant]
     Indication: ANAESTHESIA
  6. OXYGEN [Concomitant]

REACTIONS (1)
  - VOCAL CORD DISORDER [None]
